FAERS Safety Report 7069651-2 (Version None)
Quarter: 2010Q4

REPORT INFORMATION
  Report Type: 
  Country: None (occurrence: None)
  Receive Date: 20101028
  Receipt Date: 20100430
  Transmission Date: 20110411
  Serious: No
  Sender: FDA-Public Use
  Company Number: US-WYE-H14930710

PATIENT
  Age: 67 Year
  Sex: Male
  Weight: 114 kg

DRUGS (1)
  1. PROTONIX [Suspect]
     Dosage: 40 MG IV PUSH AND IT WAS ASSUMED HE WAS ALSO ON A ^DRIP^
     Route: 042
     Dates: start: 20100425

REACTIONS (2)
  - INFUSION SITE EXTRAVASATION [None]
  - INJECTION SITE REACTION [None]
